FAERS Safety Report 14324937 (Version 1)
Quarter: 2017Q4

REPORT INFORMATION
  Report Type: Spontaneous
  Country: US (occurrence: US)
  Receive Date: 20171222
  Receipt Date: 20171222
  Transmission Date: 20180321
  Serious: Yes (Disabling)
  Sender: FDA-Public Use
  Company Number: None

PATIENT
  Age: 28 Year
  Sex: Female
  Weight: 49.5 kg

DRUGS (4)
  1. PREDNISONE. [Suspect]
     Active Substance: PREDNISONE
  2. TRIAMCINOLONE [Suspect]
     Active Substance: TRIAMCINOLONE
     Indication: DERMATITIS ATOPIC
     Route: 061
  3. OMEGA 3 [Concomitant]
     Active Substance: OMEGA-3 FATTY ACIDS
  4. VITAMIN D [Concomitant]
     Active Substance: CHOLECALCIFEROL

REACTIONS (12)
  - Therapy cessation [None]
  - Drug ineffective [None]
  - Ear infection [None]
  - Insomnia [None]
  - Skin disorder [None]
  - Night sweats [None]
  - Weight decreased [None]
  - Lymphadenopathy [None]
  - Withdrawal syndrome [None]
  - Eczema [None]
  - Body temperature abnormal [None]
  - Urinary tract infection [None]

NARRATIVE: CASE EVENT DATE: 20141105
